FAERS Safety Report 7210376-8 (Version None)
Quarter: 2011Q1

REPORT INFORMATION
  Report Type: 
  Country: None (occurrence: None)
  Receive Date: 20110105
  Receipt Date: 20101224
  Transmission Date: 20110831
  Serious: Yes (Hospitalization)
  Sender: FDA-Public Use
  Company Number: PHBS2000AU12730

PATIENT
  Sex: Male

DRUGS (8)
  1. DIAZEPAM [Concomitant]
  2. MIDAZOLAM HCL [Concomitant]
  3. COGENTIN [Concomitant]
  4. CLOZARIL [Suspect]
     Indication: SCHIZOPHRENIA
     Dosage: 400 MG, QD
     Route: 048
     Dates: start: 19961127
  5. CLOZARIL [Suspect]
     Dosage: 400 MG
     Dates: end: 20000908
  6. CHLORPROMAZINE [Suspect]
     Dosage: 100-200 MG
  7. ZUCLOPENTHIXOL ACETATE [Concomitant]
     Dosage: UNK
     Route: 030
  8. DROPERIDOL [Concomitant]

REACTIONS (5)
  - POSTOPERATIVE WOUND INFECTION [None]
  - PYREXIA [None]
  - TREATMENT NONCOMPLIANCE [None]
  - TACHYCARDIA [None]
  - NEUTROPENIA [None]
